FAERS Safety Report 6641485-X (Version None)
Quarter: 2010Q1

REPORT INFORMATION
  Report Type: 
  Country: None (occurrence: None)
  Receive Date: 20100318
  Receipt Date: 20100312
  Transmission Date: 20100710
  Serious: Yes (Other)
  Sender: FDA-Public Use
  Company Number: CA-MERCK-1003USA02041

PATIENT
  Age: 60 Year
  Sex: Female

DRUGS (11)
  1. TIMOPTIC-XE [Suspect]
     Route: 047
  2. ASPIRIN [Concomitant]
     Route: 065
  3. ATASOL [Concomitant]
     Dosage: TABLET 500MG
     Route: 065
  4. CELEXA [Concomitant]
     Route: 065
  5. LIPITOR [Concomitant]
     Route: 065
  6. PRILOSEC [Concomitant]
     Route: 065
  7. NASONEX [Suspect]
     Route: 065
  8. NASONEX [Suspect]
     Route: 065
  9. VITAMINS (UNSPECIFIED) [Concomitant]
     Route: 065
  10. ZESTRIL [Concomitant]
     Route: 065
  11. REACTINE [Concomitant]
     Route: 065

REACTIONS (7)
  - COUGH [None]
  - EYE DISORDER [None]
  - EYE IRRITATION [None]
  - GLAUCOMA [None]
  - OCULAR HYPERAEMIA [None]
  - PHOTOPSIA [None]
  - VITREOUS FLOATERS [None]
